FAERS Safety Report 8601011-2 (Version None)
Quarter: 2012Q3

REPORT INFORMATION
  Report Type: 
  Country: None (occurrence: None)
  Receive Date: 20120817
  Receipt Date: 20120810
  Transmission Date: 20120928
  Serious: Yes (Other)
  Sender: FDA-Public Use
  Company Number: TR-ASTELLAS-2012EU005861

PATIENT
  Weight: 1.96 kg

DRUGS (4)
  1. TACROLIMUS [Suspect]
     Indication: FOETAL EXPOSURE DURING PREGNANCY
     Dosage: 5 MG, UNKNOWN/D
     Route: 064
  2. AZATHIOPRINE SODIUM [Suspect]
     Indication: FOETAL EXPOSURE DURING PREGNANCY
     Dosage: UNK
     Route: 064
  3. AMLODIPINE [Suspect]
     Indication: FOETAL EXPOSURE DURING PREGNANCY
     Dosage: UNK
     Route: 064
  4. CORTICOSTEROIDS [Suspect]
     Indication: FOETAL EXPOSURE DURING PREGNANCY
     Dosage: UNK
     Route: 064

REACTIONS (2)
  - PREMATURE BABY [None]
  - LOW BIRTH WEIGHT BABY [None]
